FAERS Safety Report 10815355 (Version 2)
Quarter: 2015Q1

REPORT INFORMATION
  Report Type: Spontaneous
  Country: SK (occurrence: SK)
  Receive Date: 20150218
  Receipt Date: 20150224
  Transmission Date: 20150721
  Serious: Yes (Death, Hospitalization)
  Sender: FDA-Public Use
  Company Number: PHHY2015SK017881

PATIENT
  Age: 3 Year
  Sex: Male

DRUGS (6)
  1. TREOSULFAN [Concomitant]
     Active Substance: TREOSULFAN
     Indication: STEM CELL TRANSPLANT
     Route: 065
  2. THIOTEPA. [Concomitant]
     Active Substance: THIOTEPA
     Indication: STEM CELL TRANSPLANT
     Route: 065
  3. CICLOSPORIN [Suspect]
     Active Substance: CYCLOSPORINE
     Indication: STEM CELL TRANSPLANT
     Route: 065
  4. CICLOSPORIN [Suspect]
     Active Substance: CYCLOSPORINE
     Indication: PROPHYLAXIS AGAINST GRAFT VERSUS HOST DISEASE
  5. ANTITHYMOCYTE IMMUNOGLOBULIN [Suspect]
     Active Substance: THYMOCYTE IMMUNE GLOBULIN NOS
     Indication: PROPHYLAXIS AGAINST GRAFT VERSUS HOST DISEASE
     Route: 065
  6. FLUDARABINE [Concomitant]
     Active Substance: FLUDARABINE PHOSPHATE
     Indication: STEM CELL TRANSPLANT
     Route: 065

REACTIONS (13)
  - Anuria [Unknown]
  - Pyrexia [Unknown]
  - Multi-organ failure [Fatal]
  - Fluid retention [Unknown]
  - Ascites [Unknown]
  - Peritonitis [Unknown]
  - Venoocclusive liver disease [Unknown]
  - Sepsis [Unknown]
  - Graft versus host disease in gastrointestinal tract [Unknown]
  - Intestinal haemorrhage [Unknown]
  - Renal failure [Unknown]
  - Febrile neutropenia [Unknown]
  - Respiratory failure [Unknown]
